FAERS Safety Report 4428560-5 (Version None)
Quarter: 2004Q3

REPORT INFORMATION
  Report Type: 
  Country: None (occurrence: None)
  Receive Date: 20040818
  Receipt Date: 20031001
  Transmission Date: 20050211
  Serious: No
  Sender: FDA-Public Use
  Company Number: US-BRISTOL-MYERS SQUIBB COMPANY-12399978

PATIENT
  Age: 34 Year
  Sex: Male

DRUGS (5)
  1. BLEOMYCIN [Suspect]
     Indication: GERM CELL CANCER
     Dosage: DOSAGE FORM = UNITS
     Route: 058
     Dates: start: 20030101
  2. CISPLATIN [Concomitant]
     Indication: GERM CELL CANCER
  3. ETOPOSIDE [Concomitant]
     Indication: GERM CELL CANCER
  4. BENADRYL [Concomitant]
     Indication: PREMEDICATION
  5. TYLENOL [Concomitant]
     Indication: PREMEDICATION

REACTIONS (1)
  - INJECTION SITE REACTION [None]
